FAERS Safety Report 5089959-X (Version None)
Quarter: 2006Q3

REPORT INFORMATION
  Report Type: 
  Country: None (occurrence: None)
  Receive Date: 20060828
  Receipt Date: 20060816
  Transmission Date: 20061208
  Serious: Yes (Life-Threatening, Hospitalization)
  Sender: FDA-Public Use
  Company Number: US-BRISTOL-MYERS SQUIBB COMPANY-13477989

PATIENT
  Sex: Female

DRUGS (2)
  1. DEFINITY [Suspect]
     Indication: ECHOCARDIOGRAM
     Route: 042
  2. COMBIVENT [Concomitant]

REACTIONS (4)
  - OXYGEN SATURATION DECREASED [None]
  - PALLOR [None]
  - RESPIRATORY ARREST [None]
  - VENTRICULAR EXTRASYSTOLES [None]
